FAERS Safety Report 5182697-4 (Version None)
Quarter: 2006Q4

REPORT INFORMATION
  Report Type: 
  Country: None (occurrence: None)
  Receive Date: 20061211
  Receipt Date: 20060912
  Transmission Date: 20070319
  Serious: Yes (Disabling)
  Sender: FDA-Public Use
  Company Number: CHNY2006GB02445

PATIENT
  Age: 45 Year
  Sex: Female

DRUGS (2)
  1. LAMISIL [Suspect]
     Indication: TINEA PEDIS
     Dosage: 1 SINGLE APPLICATION, TOPICAL
     Route: 061
     Dates: start: 20060824
  2. CLOTRIMAZOLE [Concomitant]

REACTIONS (4)
  - OEDEMA PERIPHERAL [None]
  - PHARMACEUTICAL PRODUCT COMPLAINT [None]
  - SEPSIS [None]
  - SKIN INFECTION [None]
